FAERS Safety Report 5393736-X (Version None)
Quarter: 2007Q3

REPORT INFORMATION
  Report Type: 
  Country: None (occurrence: None)
  Receive Date: 20070723
  Receipt Date: 20070712
  Transmission Date: 20080115
  Serious: Yes (Hospitalization)
  Sender: FDA-Public Use
  Company Number: US-AMGEN-KDL231980

PATIENT
  Sex: Female

DRUGS (2)
  1. ENBREL [Suspect]
     Indication: RHEUMATOID ARTHRITIS
     Route: 058
     Dates: start: 20060430
  2. ARAVA [Concomitant]
     Dates: start: 20040101

REACTIONS (5)
  - CATARACT [None]
  - CORONARY ARTERIAL STENT INSERTION [None]
  - FOOT OPERATION [None]
  - LOCALISED INFECTION [None]
  - RHEUMATOID ARTHRITIS [None]
